FAERS Safety Report 16410200 (Version 1)
Quarter: 2019Q2

REPORT INFORMATION
  Report Type: Spontaneous
  Country: IT (occurrence: IT)
  Receive Date: 20190610
  Receipt Date: 20190610
  Transmission Date: 20190711
  Serious: Yes (Other)
  Sender: FDA-Public Use
  Company Number: IT-MYLANLABS-2019M1053514

PATIENT
  Age: 4 Month
  Sex: Male

DRUGS (6)
  1. HUMAN IMMUNOGLOBULIN [Suspect]
     Active Substance: HUMAN IMMUNOGLOBULIN G
     Indication: KAWASAKI^S DISEASE
     Dosage: UNK ON DAY 10 FROM FEVER ONSET
     Route: 042
  2. ASPIRIN                            /00002701/ [Suspect]
     Active Substance: ASPIRIN
     Indication: KAWASAKI^S DISEASE
     Dosage: UNK ON DAY 5 FROM FEVER ONSET
     Route: 065
  3. HUMAN IMMUNOGLOBULIN [Suspect]
     Active Substance: HUMAN IMMUNOGLOBULIN G
     Dosage: UNK ON DAY 7 FROM FEVER ONSET
     Route: 042
  4. PREDNISONE. [Suspect]
     Active Substance: PREDNISONE
     Indication: KAWASAKI^S DISEASE
     Dosage: UNK
     Route: 048
  5. HUMAN IMMUNOGLOBULIN [Suspect]
     Active Substance: HUMAN IMMUNOGLOBULIN G
     Dosage: UNK ON DAY 5 FROM FEVER ONSET
     Route: 042
  6. METHYLPREDNISOLONE                 /00049602/ [Suspect]
     Active Substance: METHYLPREDNISOLONE
     Indication: KAWASAKI^S DISEASE
     Dosage: UNK ON DAY 8
     Route: 065

REACTIONS (1)
  - Drug ineffective [Unknown]
